FAERS Safety Report 8973227 (Version 1)
Quarter: 2012Q4

REPORT INFORMATION
  Report Type: 
  Country: NO (occurrence: NO)
  Receive Date: 20121219
  Receipt Date: 20121219
  Transmission Date: 20130627
  Serious: Yes (Hospitalization, Disabling, Other)
  Sender: FDA-Public Use
  Company Number: NO-009507513-2010SP063630

PATIENT
  Age: 40 Year
  Sex: Female

DRUGS (5)
  1. INTRONA [Suspect]
     Indication: HEPATITIS C
     Dosage: 3 million IU, TIW
     Dates: start: 20010122, end: 20010801
  2. REBETOL [Suspect]
     Indication: HEPATITIS C
     Dosage: 1000 mg, UNK
     Dates: start: 20010122, end: 20010801
  3. AMOXICILLIN [Concomitant]
     Indication: PRODUCT USED FOR UNKNOWN INDICATION
     Dosage: 500 mg, TID
  4. MYCOSTATIN [Concomitant]
     Indication: PRODUCT USED FOR UNKNOWN INDICATION
  5. CLARITYN [Concomitant]
     Indication: PRODUCT USED FOR UNKNOWN INDICATION
     Dosage: 30 TABLETS

REACTIONS (51)
  - Hypertrophic cardiomyopathy [Unknown]
  - Laryngitis [Unknown]
  - Neutropenia [Unknown]
  - Leukopenia [Unknown]
  - Bone marrow failure [Unknown]
  - Thrombocytopenia [Unknown]
  - Cardiac failure [Unknown]
  - Haematochezia [Unknown]
  - Epistaxis [Unknown]
  - Hepatic cirrhosis [Unknown]
  - Abdominal pain [Unknown]
  - Constipation [Unknown]
  - Arthralgia [Unknown]
  - Bone pain [Unknown]
  - Myalgia [Unknown]
  - Chest pain [Unknown]
  - Feeling cold [Unknown]
  - Urinary tract infection [Unknown]
  - Respiratory tract infection [Unknown]
  - Immune system disorder [Unknown]
  - Headache [Unknown]
  - Disturbance in attention [Unknown]
  - Psoriasis [Unknown]
  - Back pain [Unknown]
  - Dry mouth [Unknown]
  - Dry eye [Unknown]
  - Gingival bleeding [Unknown]
  - Ocular hyperaemia [Unknown]
  - Vision blurred [Unknown]
  - Musculoskeletal stiffness [Unknown]
  - Pain [Unknown]
  - Dyspnoea [Unknown]
  - Oedema peripheral [Unknown]
  - Loss of libido [Unknown]
  - Anorgasmia [Unknown]
  - Salivary duct inflammation [Unknown]
  - Bronchitis chronic [Unknown]
  - Mental disorder [Unknown]
  - Fibromyalgia [Unknown]
  - Therapeutic product ineffective [Unknown]
  - Oral fungal infection [Unknown]
  - Palpitations [Unknown]
  - Vulvovaginal pain [Unknown]
  - Vulvovaginal dryness [Unknown]
  - Laziness [Unknown]
  - Hepatic enzyme increased [Unknown]
  - Fatigue [Unknown]
  - Menstruation irregular [Unknown]
  - Oedema [Unknown]
  - Nasal dryness [Unknown]
  - Dry throat [Unknown]
